FAERS Safety Report 19441161 (Version 1)
Quarter: 2021Q2

REPORT INFORMATION
  Report Type: Spontaneous
  Country: SE (occurrence: SE)
  Receive Date: 20210621
  Receipt Date: 20210621
  Transmission Date: 20210717
  Serious: Yes (Life-Threatening)
  Sender: FDA-Public Use
  Company Number: SE-TEVA-2021-SE-1923136

PATIENT
  Age: 91 Year
  Sex: Male
  Weight: 86 kg

DRUGS (8)
  1. METOMYLAN 100 MG DEPOTTABLETT [Concomitant]
     Dosage: 200MG
     Route: 048
     Dates: start: 20180801
  2. WARAN 2,5 MG TABLETT [Suspect]
     Active Substance: WARFARIN SODIUM
     Indication: ATRIAL FIBRILLATION
     Dosage: 5.5 TABLETS A WEEK
     Route: 048
     Dates: start: 20110326
  3. IMDUR 30 MG DEPOTTABLETT [Concomitant]
     Dosage: 15MG
     Route: 048
     Dates: start: 20190731
  4. OXASCAND 5 MG TABLETT [Concomitant]
     Active Substance: OXAZEPAM
     Dosage: 1 IF NECESSARY, 5MG
     Route: 048
     Dates: start: 20210330
  5. FURIX 20 MG TABLETT [Concomitant]
     Dosage: 2 + 1 DAILY
     Route: 048
     Dates: start: 20191014
  6. ALLOPURINOL NORDIC DRUGS 100 MG TABLETT [Concomitant]
     Active Substance: ALLOPURINOL
     Dosage: 2 DOSAGE FORMS DAILY; 2 TABLETS DAILY
     Route: 048
     Dates: start: 20191211
  7. QUETIAPINE TEVA 25 MG FILMDRAGERAD TABLETT [Suspect]
     Active Substance: QUETIAPINE FUMARATE
     Indication: HALLUCINATION
     Dosage: 75MG
     Route: 048
     Dates: start: 20210330
  8. ALVEDON 500 MG FILMDRAGERAD TABLETT [Concomitant]
     Active Substance: ACETAMINOPHEN
     Dosage: 2 DOSAGE FORMS DAILY; 2 TABLETS DAILY
     Route: 048
     Dates: start: 20160928

REACTIONS (1)
  - International normalised ratio increased [Recovering/Resolving]

NARRATIVE: CASE EVENT DATE: 20210517
